FAERS Safety Report 8264933-0 (Version None)
Quarter: 2012Q2

REPORT INFORMATION
  Report Type: 
  Country: None (occurrence: None)
  Receive Date: 20120403
  Receipt Date: 20120323
  Transmission Date: 20120825
  Serious: Yes (Hospitalization)
  Sender: FDA-Public Use
  Company Number: 2012SP016151

PATIENT
  Age: 35 Year
  Sex: Male

DRUGS (2)
  1. ACETAMINOPHEN [Concomitant]
  2. ISOCEF (CEFTIBUTEN /01166201/) [Suspect]
     Indication: BRONCHITIS
     Dosage: 400 MG;QD PO
     Route: 048
     Dates: start: 20120229, end: 20120229

REACTIONS (1)
  - SYNCOPE [None]
